FAERS Safety Report 10055081 (Version 5)
Quarter: 2021Q4

REPORT INFORMATION
  Report Type: Report from Study
  Country: US (occurrence: US)
  Receive Date: 20140402
  Receipt Date: 20211014
  Transmission Date: 20220303
  Serious: Yes (Hospitalization, Disabling, Other)
  Sender: FDA-Public Use
  Company Number: US-SANOFI-AVENTIS-2013SA006733

PATIENT
  Age: 56 Year
  Sex: Female

DRUGS (9)
  1. TERIFLUNOMIDE [Suspect]
     Active Substance: TERIFLUNOMIDE
     Indication: Multiple sclerosis
     Dosage: 7 MG,QD
     Route: 048
     Dates: start: 20130104
  2. TERIFLUNOMIDE [Suspect]
     Active Substance: TERIFLUNOMIDE
     Dosage: 14 MG,QD
     Route: 048
     Dates: start: 20130204
  3. TERIFLUNOMIDE [Suspect]
     Active Substance: TERIFLUNOMIDE
     Dosage: 14 MG,QD
     Route: 048
     Dates: start: 20140619, end: 20140818
  4. TERIFLUNOMIDE [Suspect]
     Active Substance: TERIFLUNOMIDE
     Dosage: 14 MG,QD
     Route: 048
     Dates: end: 202004
  5. TERIFLUNOMIDE [Suspect]
     Active Substance: TERIFLUNOMIDE
     Dosage: 14 MG,QD
     Route: 048
  6. OMEPRAZOLE [Concomitant]
     Active Substance: OMEPRAZOLE
     Dosage: UNK
  7. OXYBUTYNIN. [Concomitant]
     Active Substance: OXYBUTYNIN CHLORIDE
     Dosage: UNK
  8. MORPHINE SULFATE [Concomitant]
     Active Substance: MORPHINE SULFATE
     Indication: Back pain
     Dosage: UNK
  9. HYDROXYZINE [Concomitant]
     Active Substance: HYDROXYZINE HYDROCHLORIDE
     Dosage: UNK, PRN

REACTIONS (62)
  - Bedridden [Unknown]
  - Multiple sclerosis relapse [Unknown]
  - Hospitalisation [Unknown]
  - Sepsis [Not Recovered/Not Resolved]
  - Cystitis [Not Recovered/Not Resolved]
  - Neuralgia [Not Recovered/Not Resolved]
  - Post procedural complication [Not Recovered/Not Resolved]
  - Swelling [Not Recovered/Not Resolved]
  - Dysstasia [Not Recovered/Not Resolved]
  - Eyelid margin crusting [Unknown]
  - Dysphagia [Unknown]
  - Oropharyngeal pain [Unknown]
  - Photophobia [Unknown]
  - Lacrimation increased [Unknown]
  - Erythema [Unknown]
  - Illness [Unknown]
  - Abdominal discomfort [Unknown]
  - Cough [Not Recovered/Not Resolved]
  - Pain [Unknown]
  - Pyrexia [Recovered/Resolved]
  - Decreased appetite [Not Recovered/Not Resolved]
  - Vertigo [Not Recovered/Not Resolved]
  - Chills [Unknown]
  - Vomiting [Recovering/Resolving]
  - Sinus disorder [Not Recovered/Not Resolved]
  - Ear congestion [Not Recovered/Not Resolved]
  - Lymphadenopathy [Not Recovered/Not Resolved]
  - Upper-airway cough syndrome [Not Recovered/Not Resolved]
  - Visual impairment [Not Recovered/Not Resolved]
  - Rotator cuff syndrome [Not Recovered/Not Resolved]
  - Fall [Not Recovered/Not Resolved]
  - Depression [Unknown]
  - Memory impairment [Not Recovered/Not Resolved]
  - Grief reaction [Unknown]
  - Rhinorrhoea [Unknown]
  - Dizziness [Recovered/Resolved]
  - Nasal congestion [Not Recovered/Not Resolved]
  - Illness [Not Recovered/Not Resolved]
  - Spinal stenosis [Not Recovered/Not Resolved]
  - Condition aggravated [Not Recovered/Not Resolved]
  - Bronchitis [Not Recovered/Not Resolved]
  - Nasopharyngitis [Not Recovered/Not Resolved]
  - Weight decreased [Not Recovered/Not Resolved]
  - Arthralgia [Unknown]
  - Back pain [Not Recovered/Not Resolved]
  - Pain in extremity [Not Recovered/Not Resolved]
  - Condition aggravated [Not Recovered/Not Resolved]
  - Hypertension [Recovered/Resolved]
  - Spinal operation [Unknown]
  - Diarrhoea [Unknown]
  - Faeces soft [Unknown]
  - Paraesthesia [Unknown]
  - Headache [Unknown]
  - Influenza [Not Recovered/Not Resolved]
  - Nausea [Not Recovered/Not Resolved]
  - Hypoaesthesia [Unknown]
  - Gastroenteritis viral [Unknown]
  - Wrong technique in product usage process [Unknown]
  - Product storage error [Unknown]
  - Product use issue [Unknown]
  - Product dose omission issue [Unknown]
  - Product use issue [Unknown]

NARRATIVE: CASE EVENT DATE: 20130101
